FAERS Safety Report 13733929 (Version 1)
Quarter: 2017Q3

REPORT INFORMATION
  Report Type: Spontaneous
  Country: US (occurrence: US)
  Receive Date: 20170707
  Receipt Date: 20170707
  Transmission Date: 20171127
  Serious: Yes (Death, Hospitalization)
  Sender: FDA-Public Use
  Company Number: US-ACTELION-A-NJ2017-156377

PATIENT
  Age: 89 Year
  Sex: Female
  Weight: 58.96 kg

DRUGS (2)
  1. XARELTO [Concomitant]
     Active Substance: RIVAROXABAN
  2. UPTRAVI [Suspect]
     Active Substance: SELEXIPAG
     Indication: PULMONARY ARTERIAL HYPERTENSION
     Dosage: 800 MCG, BID
     Route: 048

REACTIONS (7)
  - Metabolic encephalopathy [Unknown]
  - Vascular dementia [Unknown]
  - Bradycardia [Unknown]
  - Cardiac failure congestive [Unknown]
  - Death [Fatal]
  - Escherichia infection [Unknown]
  - Pulmonary oedema [Unknown]
